FAERS Safety Report 8919163 (Version 2)
Quarter: 2012Q4

REPORT INFORMATION
  Report Type: 
  Country: CN (occurrence: CN)
  Receive Date: 20121121
  Receipt Date: 20121130
  Transmission Date: 20130627
  Serious: Yes (Hospitalization)
  Sender: FDA-Public Use
  Company Number: CN-ELI_LILLY_AND_COMPANY-CN201211004272

PATIENT
  Age: 59 Year
  Sex: Female
  Weight: 40 kg

DRUGS (3)
  1. FORSTEO [Suspect]
     Indication: OSTEOPOROSIS POSTMENOPAUSAL
     Dosage: 20 ug, qd
     Route: 058
     Dates: start: 20121020
  2. CALCIUM [Concomitant]
  3. ANTIHYPERTENSIVES [Concomitant]

REACTIONS (3)
  - Urinary retention [Recovered/Resolved]
  - Blood pressure increased [Recovered/Resolved]
  - Injection site haemorrhage [Recovering/Resolving]
